FAERS Safety Report 9046231 (Version 1)
Quarter: 2013Q1

REPORT INFORMATION
  Report Type: Spontaneous
  Country: US (occurrence: None)
  Receive Date: 20130128
  Receipt Date: 20130128
  Transmission Date: 20140127
  Serious: Yes (Hospitalization)
  Sender: FDA-Public Use
  Company Number: None

PATIENT
  Sex: Female
  Weight: 63 kg

DRUGS (3)
  1. CYCLOPHOSPHAMIDE, 600 MG [Suspect]
     Dates: end: 20051227
  2. DOXORUBICIN HYDROCHLORIDE, 60 MG [Suspect]
     Dates: end: 20051227
  3. PACLITAXEL (TAXOL) 175 MG [Suspect]
     Dates: start: 20060221

REACTIONS (1)
  - Pancytopenia [None]
